FAERS Safety Report 4504495-4 (Version None)
Quarter: 2004Q4

REPORT INFORMATION
  Report Type: 
  Country: None (occurrence: None)
  Receive Date: 20041118
  Receipt Date: 20041005
  Transmission Date: 20050328
  Serious: Yes (Life-Threatening, Hospitalization, Disabling, Other)
  Sender: FDA-Public Use
  Company Number: AU-MERCK-0410AUS00038

PATIENT
  Age: 76 Year
  Sex: Male

DRUGS (3)
  1. VIOXX [Suspect]
     Indication: SPINAL OSTEOARTHRITIS
     Route: 048
     Dates: start: 20031009, end: 20040128
  2. PROPRANOLOL HYDROCHLORIDE [Concomitant]
     Indication: TREMOR
     Route: 065
     Dates: start: 20030606, end: 20040128
  3. OMEPRAZOLE [Concomitant]
     Indication: GASTROOESOPHAGEAL REFLUX DISEASE
     Route: 065

REACTIONS (6)
  - BLINDNESS UNILATERAL [None]
  - CEREBROVASCULAR ACCIDENT [None]
  - COMA [None]
  - DEPRESSION [None]
  - GAIT DISTURBANCE [None]
  - MEMORY IMPAIRMENT [None]
